FAERS Safety Report 7405855-4 (Version None)
Quarter: 2011Q2

REPORT INFORMATION
  Report Type: 
  Country: None (occurrence: None)
  Receive Date: 20110411
  Receipt Date: 20110328
  Transmission Date: 20111010
  Serious: Yes (Death)
  Sender: FDA-Public Use
  Company Number: US-ACTELION-A-US2011-45514

PATIENT

DRUGS (3)
  1. VENTAVIS [Suspect]
     Dosage: UNK
     Route: 055
     Dates: start: 20090520, end: 20100221
  2. TRACLEER [Suspect]
     Indication: PULMONARY ARTERIAL HYPERTENSION
     Dosage: UNK
     Route: 048
     Dates: start: 20090520, end: 20100221
  3. VENTAVIS [Suspect]
     Indication: PULMONARY ARTERIAL HYPERTENSION
     Dosage: UNK UG, UNK
     Route: 055
     Dates: start: 20100222, end: 20110221

REACTIONS (6)
  - SINUSITIS [None]
  - CANDIDIASIS [None]
  - RESPIRATORY TRACT INFECTION [None]
  - FLUID RETENTION [None]
  - LUNG NEOPLASM MALIGNANT [None]
  - OESOPHAGITIS [None]
